FAERS Safety Report 14987811 (Version 1)
Quarter: 2018Q2

REPORT INFORMATION
  Report Type: Spontaneous
  Country: US (occurrence: US)
  Receive Date: 20180519
  Receipt Date: 20180519
  Transmission Date: 20180711
  Serious: Yes (Other)
  Sender: FDA-Public Use
  Company Number: None

PATIENT
  Age: 38 Year
  Sex: Female
  Weight: 92.7 kg

DRUGS (8)
  1. ABILIFY MAINTENA [Suspect]
     Active Substance: ARIPIPRAZOLE
     Indication: MANIA
     Dosage: ?          QUANTITY:1 DF DOSAGE FORM;?
     Route: 030
     Dates: start: 20130524, end: 20180518
  2. NEOSPORIN [Concomitant]
     Active Substance: BACITRACIN ZINC\NEOMYCIN SULFATE\POLYMYXIN B SULFATE
  3. MULTI NON IRON VITAMIN WOMEN^S [Concomitant]
  4. CERTIC [Concomitant]
  5. PARIETAL [Concomitant]
  6. ZOLOFT [Concomitant]
     Active Substance: SERTRALINE HYDROCHLORIDE
  7. PRAZOSIN. [Concomitant]
     Active Substance: PRAZOSIN
  8. BUPOPRIN [Concomitant]

REACTIONS (3)
  - Dyspnoea [None]
  - Asphyxia [None]
  - Unevaluable event [None]

NARRATIVE: CASE EVENT DATE: 20180518
